FAERS Safety Report 4389366-9 (Version None)
Quarter: 2004Q3

REPORT INFORMATION
  Report Type: 
  Country: None (occurrence: None)
  Receive Date: 20040701
  Receipt Date: 20040701
  Transmission Date: 20050211
  Serious: Yes (Hospitalization)
  Sender: FDA-Public Use
  Company Number: None

PATIENT
  Sex: Male
  Weight: 92.3 kg

DRUGS (1)
  1. AMIODARONE HCL [Suspect]
     Indication: ATRIAL FIBRILLATION
     Dosage: 200 MG PO QD
     Route: 048

REACTIONS (6)
  - ATRIAL FIBRILLATION [None]
  - DIZZINESS [None]
  - DYSPNOEA EXERTIONAL [None]
  - HEADACHE [None]
  - HYPERHIDROSIS [None]
  - HYPERTHYROIDISM [None]
